FAERS Safety Report 19295748 (Version 3)
Quarter: 2021Q3

REPORT INFORMATION
  Report Type: Spontaneous
  Country: US (occurrence: US)
  Receive Date: 20210524
  Receipt Date: 20210809
  Transmission Date: 20211014
  Serious: No
  Sender: FDA-Public Use
  Company Number: US-BIOGEN-2021BI01013099

PATIENT
  Sex: Female

DRUGS (1)
  1. TYSABRI [Suspect]
     Active Substance: NATALIZUMAB
     Indication: MULTIPLE SCLEROSIS
     Route: 065
     Dates: start: 20210517

REACTIONS (5)
  - Bruxism [Unknown]
  - Feeling abnormal [Unknown]
  - Nausea [Unknown]
  - Multiple sclerosis [Unknown]
  - Jaw disorder [Unknown]
